FAERS Safety Report 5250785-X (Version None)
Quarter: 2007Q1

REPORT INFORMATION
  Report Type: 
  Country: None (occurrence: None)
  Receive Date: 20070228
  Receipt Date: 20060705
  Transmission Date: 20070707
  Serious: No
  Sender: FDA-Public Use
  Company Number: US-GLAXOSMITHKLINE-A0611150A

PATIENT
  Age: 49 Year
  Sex: Female

DRUGS (9)
  1. LAMICTAL [Suspect]
     Indication: BIPOLAR DISORDER
     Dosage: 25MG THREE TIMES PER DAY
     Route: 048
     Dates: start: 20051201
  2. VALIUM [Concomitant]
  3. CELEBREX [Concomitant]
  4. TYLENOL [Concomitant]
  5. HRT PATCH [Concomitant]
  6. VITAMINS [Concomitant]
  7. CALCIUM [Concomitant]
  8. DEPAKOTE [Concomitant]
  9. ACTONEL [Concomitant]

REACTIONS (1)
  - PAIN IN EXTREMITY [None]
